FAERS Safety Report 12104666 (Version 4)
Quarter: 2016Q1

REPORT INFORMATION
  Report Type: Spontaneous
  Country: DE (occurrence: DE)
  Receive Date: 20160223
  Receipt Date: 20160324
  Transmission Date: 20160526
  Serious: Yes (Death, Hospitalization)
  Sender: FDA-Public Use
  Company Number: DE-ASTELLAS-2016US006409

PATIENT
  Age: 73 Year
  Sex: Female

DRUGS (4)
  1. RAPISCAN [Suspect]
     Active Substance: REGADENOSON
     Indication: DYSPNOEA EXERTIONAL
  2. BISOPROLOL [Concomitant]
     Active Substance: BISOPROLOL
     Indication: PRODUCT USED FOR UNKNOWN INDICATION
     Route: 065
  3. RAPISCAN [Suspect]
     Active Substance: REGADENOSON
     Indication: SCAN MYOCARDIAL PERFUSION
     Dosage: UNK UNK, UNKNOWN FREQ. FOR 30 SECONDS
     Route: 065
     Dates: start: 20160118, end: 20160118
  4. LOPRESS                            /01121602/ [Concomitant]
     Indication: PRODUCT USED FOR UNKNOWN INDICATION
     Route: 065

REACTIONS (4)
  - Death [Fatal]
  - Cerebrovascular accident [Fatal]
  - Syncope [Fatal]
  - Hemiplegia [Fatal]

NARRATIVE: CASE EVENT DATE: 20160118
